FAERS Safety Report 9516075 (Version 2)
Quarter: 2014Q1

REPORT INFORMATION
  Report Type: Spontaneous
  Country: SE (occurrence: SE)
  Receive Date: 20130911
  Receipt Date: 20140124
  Transmission Date: 20141002
  Serious: Yes (Death)
  Sender: FDA-Public Use
  Company Number: SE-SANOFI-AVENTIS-2013SA088738

PATIENT
  Age: 27 Year
  Sex: Female

DRUGS (1)
  1. STILNOCT [Suspect]
     Indication: SLEEP DISORDER
     Route: 065
     Dates: start: 2004

REACTIONS (1)
  - Completed suicide [Fatal]
